FAERS Safety Report 11819791 (Version 2)
Quarter: 2016Q1

REPORT INFORMATION
  Report Type: Spontaneous
  Country: US (occurrence: US)
  Receive Date: 20151210
  Receipt Date: 20160210
  Transmission Date: 20160525
  Serious: No
  Sender: FDA-Public Use
  Company Number: US-JNJFOC-20151123732

PATIENT
  Age: 15 Year
  Sex: Male

DRUGS (4)
  1. RISPERIDONE. [Suspect]
     Active Substance: RISPERIDONE
     Indication: ATTENTION DEFICIT/HYPERACTIVITY DISORDER
     Dosage: 0.25MG-2MG
     Route: 065
     Dates: start: 201103, end: 201408
  2. METADATE CD [Concomitant]
     Active Substance: METHYLPHENIDATE HYDROCHLORIDE
     Indication: PRODUCT USED FOR UNKNOWN INDICATION
     Route: 065
     Dates: start: 2008, end: 2012
  3. DEXMETHYLPHENIDATE [Concomitant]
     Active Substance: DEXMETHYLPHENIDATE HYDROCHLORIDE
     Indication: PRODUCT USED FOR UNKNOWN INDICATION
     Route: 065
     Dates: start: 2011, end: 2012
  4. CONCERTA [Concomitant]
     Active Substance: METHYLPHENIDATE HYDROCHLORIDE
     Indication: PRODUCT USED FOR UNKNOWN INDICATION
     Route: 065
     Dates: start: 2010, end: 2011

REACTIONS (2)
  - Gynaecomastia [Unknown]
  - Emotional disorder [Unknown]

NARRATIVE: CASE EVENT DATE: 201408
